FAERS Safety Report 20615119 (Version 2)
Quarter: 2022Q3

REPORT INFORMATION
  Report Type: Spontaneous
  Country: US (occurrence: US)
  Receive Date: 20220321
  Receipt Date: 20220929
  Transmission Date: 20221027
  Serious: No
  Sender: FDA-Public Use
  Company Number: US-Calliditas-2022CAL00006

PATIENT
  Age: 37 Year
  Sex: Male

DRUGS (3)
  1. TARPEYO [Suspect]
     Active Substance: BUDESONIDE
     Indication: Haematuria
     Dosage: 16 MG ONCE DAILY
     Route: 050
     Dates: start: 20220207
  2. JARDIANCE [Concomitant]
     Active Substance: EMPAGLIFLOZIN
     Dosage: 10MG IN THE EVENING
  3. LISINOPRIL [Concomitant]
     Active Substance: LISINOPRIL
     Dosage: 10MG MORNING AND EVENING
     Dates: start: 202110

REACTIONS (3)
  - Blood pressure increased [Recovered/Resolved]
  - Energy increased [Not Recovered/Not Resolved]
  - Blood potassium increased [Unknown]

NARRATIVE: CASE EVENT DATE: 20220301
